FAERS Safety Report 4842677-2 (Version None)
Quarter: 2005Q4

REPORT INFORMATION
  Report Type: 
  Country: None (occurrence: None)
  Receive Date: 20051201
  Receipt Date: 20051122
  Transmission Date: 20060501
  Serious: Yes (Other)
  Sender: FDA-Public Use
  Company Number: US-AVENTIS-200519635US

PATIENT

DRUGS (2)
  1. LANTUS [Suspect]
     Indication: DIABETES MELLITUS INSULIN-DEPENDENT
     Dosage: DOSE: UNKNOWN
     Route: 051
  2. HUMALOG [Concomitant]
     Dosage: DOSE: UNKNOWN

REACTIONS (1)
  - LOSS OF CONSCIOUSNESS [None]
